FAERS Safety Report 11256136 (Version 1)
Quarter: 2015Q3

REPORT INFORMATION
  Report Type: Spontaneous
  Country: US (occurrence: US)
  Receive Date: 20150709
  Receipt Date: 20150709
  Transmission Date: 20151125
  Serious: No
  Sender: FDA-Public Use
  Company Number: US-VIIV HEALTHCARE LIMITED-A1084994A

PATIENT
  Sex: Male

DRUGS (1)
  1. EPZICOM [Suspect]
     Active Substance: ABACAVIR SULFATE\LAMIVUDINE
     Route: 048

REACTIONS (4)
  - Abdominal pain upper [Unknown]
  - Pruritus [Unknown]
  - Drug hypersensitivity [Unknown]
  - Abdominal pain [Unknown]
